APPROVED DRUG PRODUCT: OXYCODONE HYDROCHLORIDE
Active Ingredient: OXYCODONE HYDROCHLORIDE
Strength: 10MG
Dosage Form/Route: TABLET;ORAL
Application: A091490 | Product #002 | TE Code: AB
Applicant: RHODES PHARMACEUTICALS LP
Approved: Mar 9, 2011 | RLD: No | RS: No | Type: RX